FAERS Safety Report 15706074 (Version 2)
Quarter: 2022Q3

REPORT INFORMATION
  Report Type: Spontaneous
  Country: US (occurrence: US)
  Receive Date: 20181210
  Receipt Date: 20220914
  Transmission Date: 20221027
  Serious: Yes (Disabling)
  Sender: FDA-Public Use
  Company Number: US-TEVA-2018-US-985451

PATIENT
  Sex: Female

DRUGS (4)
  1. DOCETAXEL [Suspect]
     Active Substance: DOCETAXEL
     Indication: Breast cancer female
     Dosage: DOSE: 75 MG, 04 CYCLES EVERY 3 WEEKS
     Route: 065
     Dates: start: 20141218, end: 20150220
  2. DOCETAXEL [Suspect]
     Active Substance: DOCETAXEL
     Indication: Breast cancer female
     Dosage: DOSE: 75 MG, 04 CYCLES EVERY 3 WEEKS
     Route: 065
     Dates: start: 20141218, end: 20150220
  3. DOCETAXEL [Suspect]
     Active Substance: DOCETAXEL
     Indication: Breast cancer female
     Dosage: DOSE: 75 MG, 04 CYCLES EVERY 3 WEEKS
     Route: 065
     Dates: start: 20141218, end: 20150220
  4. DOCETAXEL [Suspect]
     Active Substance: DOCETAXEL
     Indication: Breast cancer female
     Dosage: DOSE: 75 MG, 04 CYCLES EVERY 3 WEEKS
     Route: 065
     Dates: start: 20141218, end: 20150220

REACTIONS (1)
  - Alopecia [Unknown]
